FAERS Safety Report 10394476 (Version 1)
Quarter: 2014Q3

REPORT INFORMATION
  Report Type: Report from Study
  Country: BR (occurrence: BR)
  Receive Date: 20140819
  Receipt Date: 20140819
  Transmission Date: 20150326
  Serious: Yes (Other)
  Sender: FDA-Public Use
  Company Number: PHHY2014BR101816

PATIENT
  Age: 57 Year
  Sex: Male

DRUGS (8)
  1. BECLOMETHASONE [Concomitant]
     Active Substance: BECLOMETHASONE
     Dosage: 750 UG, PER DAY
  2. INDACATEROL [Suspect]
     Active Substance: INDACATEROL
     Dosage: UNK UKN, UNK
  3. ALPRAZOLAM. [Concomitant]
     Active Substance: ALPRAZOLAM
     Indication: ANXIOLYTIC THERAPY
     Dosage: 2-4 MG, DAILY
  4. FORMOTEROL [Concomitant]
     Active Substance: FORMOTEROL
     Dosage: 24 UG, PER DAY
  5. FLUOXETINE [Concomitant]
     Active Substance: FLUOXETINE\FLUOXETINE HYDROCHLORIDE
     Indication: ANTIDEPRESSANT THERAPY
     Dosage: 40 MG, PER DAY
  6. INDACATEROL [Suspect]
     Active Substance: INDACATEROL
     Dosage: UNK UKN, UNK
     Dates: start: 201305, end: 201311
  7. BUDESONIDE, FORMOTEROL FUMARATE [Suspect]
     Active Substance: BUDESONIDE\FORMOTEROL FUMARATE DIHYDRATE
     Dosage: 1 DF, BID
  8. ACETYLCYSTEINE. [Suspect]
     Active Substance: ACETYLCYSTEINE
     Dosage: 600 MG, PER DAY

REACTIONS (3)
  - Respiratory failure [Unknown]
  - General physical health deterioration [Unknown]
  - Dyspnoea [Recovering/Resolving]
